FAERS Safety Report 7563758-9 (Version None)
Quarter: 2011Q2

REPORT INFORMATION
  Report Type: 
  Country: None (occurrence: None)
  Receive Date: 20110622
  Receipt Date: 20110607
  Transmission Date: 20111010
  Serious: Yes (Other)
  Sender: FDA-Public Use
  Company Number: GB-ARROW GEN-2011-08235

PATIENT
  Age: 62 Year
  Sex: Male

DRUGS (4)
  1. OLANZAPINE [Concomitant]
     Indication: PSYCHOTIC DISORDER
     Dosage: 7.5 MG, UNK
     Route: 048
     Dates: start: 20100801
  2. TEMAZEPAM [Concomitant]
     Indication: INSOMNIA
     Dosage: UNKNOWN
     Route: 048
  3. DIAZEPAM [Concomitant]
     Indication: ANXIETY
     Dosage: 2 MG, UNK
     Route: 048
     Dates: start: 20100701
  4. MIRTAZAPINE [Suspect]
     Indication: DEPRESSION
     Dosage: 45 MG, UNK
     Route: 048
     Dates: start: 20100701

REACTIONS (2)
  - WHITE BLOOD CELL COUNT DECREASED [None]
  - NEUTROPHIL COUNT DECREASED [None]
